FAERS Safety Report 12598160 (Version 5)
Quarter: 2016Q3

REPORT INFORMATION
  Report Type: Report from Study
  Country: US (occurrence: US)
  Receive Date: 20160727
  Receipt Date: 20160817
  Transmission Date: 20161109
  Serious: Yes (Hospitalization, Other)
  Sender: FDA-Public Use
  Company Number: US-GILEAD-2016-0224875

PATIENT
  Age: 46 Year
  Sex: Female

DRUGS (4)
  1. AMBRISENTAN [Suspect]
     Active Substance: AMBRISENTAN
     Indication: PRODUCT USED FOR UNKNOWN INDICATION
     Dosage: 10 MG, QD
     Route: 065
     Dates: start: 20140815
  2. ADCIRCA [Concomitant]
     Active Substance: TADALAFIL
  3. REMODULIN [Concomitant]
     Active Substance: TREPROSTINIL
  4. REVATIO [Concomitant]
     Active Substance: SILDENAFIL CITRATE

REACTIONS (12)
  - Malaise [Unknown]
  - Feeling hot [Unknown]
  - Abasia [Unknown]
  - Joint swelling [Unknown]
  - Arthralgia [Unknown]
  - Arthritis infective [Unknown]
  - Hypotension [Unknown]
  - Pain [Not Recovered/Not Resolved]
  - Fall [Unknown]
  - Pain in extremity [Unknown]
  - Dizziness [Unknown]
  - Localised infection [Unknown]

NARRATIVE: CASE EVENT DATE: 20160729
